FAERS Safety Report 9770859 (Version 1)
Quarter: 2013Q4

REPORT INFORMATION
  Report Type: Spontaneous
  Country: US (occurrence: US)
  Receive Date: 20131218
  Receipt Date: 20131218
  Transmission Date: 20140711
  Serious: No
  Sender: FDA-Public Use
  Company Number: US-BIOGENIDEC-2013BI119632

PATIENT
  Age: 35 Year
  Sex: Male

DRUGS (6)
  1. TECFIDERA [Suspect]
     Indication: MULTIPLE SCLEROSIS
     Route: 048
     Dates: start: 201310
  2. VITAMIN B COMPLEX [Concomitant]
  3. VITAMIN B12 [Concomitant]
  4. FISH OIL [Concomitant]
  5. VITAMIN C [Concomitant]
  6. CO Q10 [Concomitant]

REACTIONS (3)
  - Fatigue [Unknown]
  - Cough [Unknown]
  - General symptom [Unknown]
